FAERS Safety Report 8170651 (Version 4)
Quarter: 2014Q2

REPORT INFORMATION
  Report Type: Spontaneous
  Country: GB (occurrence: GB)
  Receive Date: 20111006
  Receipt Date: 20140624
  Transmission Date: 20141212
  Serious: Yes (Life-Threatening, Hospitalization, Disabling, Other)
  Sender: FDA-Public Use
  Company Number: PHHY2011GB87292

PATIENT
  Age: 31 Year
  Sex: Female
  Weight: 63.5 kg

DRUGS (2)
  1. CLONAZEPAM [Suspect]
     Indication: SEDATION
     Route: 048
     Dates: start: 20110224, end: 20110410
  2. QUETIAPINE [Suspect]
     Indication: PSYCHOTIC DISORDER
     Dosage: 300 MG, UNK
     Route: 048
     Dates: start: 20110224, end: 20110506

REACTIONS (32)
  - Serotonin syndrome [Unknown]
  - Neuroleptic malignant syndrome [Unknown]
  - Psychotic disorder [Unknown]
  - Agitation [Unknown]
  - Hallucination [Recovered/Resolved]
  - Parosmia [Unknown]
  - Sensory loss [Unknown]
  - Muscular weakness [Unknown]
  - Sensory disturbance [Unknown]
  - Incontinence [Unknown]
  - Urinary retention [Unknown]
  - Paraesthesia [Unknown]
  - Gastric pH decreased [Unknown]
  - Gait disturbance [Unknown]
  - Swollen tongue [Unknown]
  - Vision blurred [Unknown]
  - Pain [Unknown]
  - Speech disorder [Unknown]
  - VIIth nerve paralysis [Unknown]
  - Myalgia [Unknown]
  - Musculoskeletal stiffness [Unknown]
  - Tinnitus [Unknown]
  - Cogwheel rigidity [Unknown]
  - Drooling [Unknown]
  - Schizophrenia [Unknown]
  - Muscle rigidity [Unknown]
  - Arthralgia [Unknown]
  - Pruritus [Unknown]
  - Pupillary disorder [Unknown]
  - Abasia [Unknown]
  - Incoherent [Unknown]
  - Eye pain [Unknown]
